APPROVED DRUG PRODUCT: SODIUM ACETATE
Active Ingredient: SODIUM ACETATE
Strength: 400MEQ/100ML (4MEQ/ML)
Dosage Form/Route: SOLUTION;INTRAVENOUS
Application: A214805 | Product #002 | TE Code: AP
Applicant: MILLA PHARMACEUTICALS INC
Approved: Aug 25, 2023 | RLD: No | RS: No | Type: RX